FAERS Safety Report 4560968-X (Version None)
Quarter: 2005Q1

REPORT INFORMATION
  Report Type: 
  Country: None (occurrence: None)
  Receive Date: 20050126
  Receipt Date: 20040412
  Transmission Date: 20050727
  Serious: No
  Sender: FDA-Public Use
  Company Number: US-BRISTOL-MYERS SQUIBB COMPANY-12557880

PATIENT
  Age: 56 Year
  Sex: Female
  Weight: 86 kg

DRUGS (3)
  1. GLUCOPHAGE [Suspect]
     Indication: DIABETES MELLITUS
     Dosage: DOSE = ^1 TO 2 TABLETS, 3 TO 4 TIMES A DAY^
     Route: 048
     Dates: end: 20031001
  2. GLUCOTROL [Concomitant]
  3. ALTACE [Concomitant]

REACTIONS (1)
  - DIARRHOEA [None]
